FAERS Safety Report 8917835 (Version 1)
Quarter: 2012Q4

REPORT INFORMATION
  Report Type: 
  Country: US (occurrence: US)
  Receive Date: 20121120
  Receipt Date: 20121120
  Transmission Date: 20130627
  Serious: Yes (Death, Other)
  Sender: FDA-Public Use
  Company Number: US-TEVA-371382USA

PATIENT
  Age: 8 None
  Sex: Male

DRUGS (2)
  1. TREANDA [Suspect]
  2. RITUXAN [Suspect]

REACTIONS (1)
  - Bone marrow failure [Fatal]
